FAERS Safety Report 7589951-7 (Version None)
Quarter: 2011Q3

REPORT INFORMATION
  Report Type: 
  Country: None (occurrence: None)
  Receive Date: 20110705
  Receipt Date: 20110614
  Transmission Date: 20111222
  Serious: Yes (Hospitalization)
  Sender: FDA-Public Use
  Company Number: A0805973A

PATIENT
  Age: 47 Year
  Sex: Female
  Weight: 81.4 kg

DRUGS (16)
  1. BUPROPION HCL [Concomitant]
  2. NASACORT [Concomitant]
  3. ZELNORM [Concomitant]
  4. CLONIDINE [Concomitant]
  5. CELEXA [Concomitant]
  6. DIOVAN HCT [Concomitant]
  7. VERPAMIL HCL [Concomitant]
  8. ACIPHEX [Concomitant]
  9. ZANAFLEX [Concomitant]
  10. AVANDIA [Suspect]
     Dosage: 8MG PER DAY
     Route: 048
     Dates: start: 20030101, end: 20081231
  11. GABITRIL [Concomitant]
  12. CLORAZEPATE DIPOTASSIUM [Concomitant]
  13. ZONEGRAN [Concomitant]
  14. NEURONTIN [Concomitant]
  15. ZETIA [Concomitant]
  16. CLARITIN [Concomitant]

REACTIONS (5)
  - CEREBROVASCULAR ACCIDENT [None]
  - NEUROPATHY PERIPHERAL [None]
  - RESPIRATORY FAILURE [None]
  - CARDIAC FAILURE CONGESTIVE [None]
  - PAIN [None]
